FAERS Safety Report 16095352 (Version 1)
Quarter: 2019Q2

REPORT INFORMATION
  Report Type: Spontaneous
  Country: US (occurrence: US)
  Receive Date: 20190320
  Receipt Date: 20190320
  Transmission Date: 20190711
  Serious: Yes (Hospitalization)
  Sender: FDA-Public Use
  Company Number: None

PATIENT
  Age: 66 Year
  Sex: Male

DRUGS (16)
  1. CYMBALTA [Concomitant]
     Active Substance: DULOXETINE HYDROCHLORIDE
  2. CARVEDILOL. [Concomitant]
     Active Substance: CARVEDILOL
  3. VALSARTAN. [Concomitant]
     Active Substance: VALSARTAN
  4. SOTALOL. [Concomitant]
     Active Substance: SOTALOL
  5. MECLIZINE [Concomitant]
     Active Substance: MECLIZINE HYDROCHLORIDE
  6. URO-MAG [Concomitant]
  7. HUMIRA [Suspect]
     Active Substance: ADALIMUMAB
     Indication: PROCTITIS ULCERATIVE
     Dosage: ?          OTHER FREQUENCY:WEEKLY;?
     Route: 058
     Dates: start: 20151020
  8. GEMFIBROZIL. [Concomitant]
     Active Substance: GEMFIBROZIL
  9. ATORVASTATIN [Concomitant]
     Active Substance: ATORVASTATIN
  10. VALIUM [Concomitant]
     Active Substance: DIAZEPAM
  11. CANASA [Concomitant]
     Active Substance: MESALAMINE
  12. VITAMIN B12 [Concomitant]
     Active Substance: CYANOCOBALAMIN
  13. DULOXETINE. [Concomitant]
     Active Substance: DULOXETINE
  14. ENTRESTO [Concomitant]
     Active Substance: SACUBITRIL\VALSARTAN
  15. MAG OXIDE [Concomitant]
     Active Substance: MAGNESIUM OXIDE
  16. PROTONIX [Concomitant]
     Active Substance: PANTOPRAZOLE SODIUM

REACTIONS (2)
  - Diarrhoea [None]
  - Bacterial infection [None]

NARRATIVE: CASE EVENT DATE: 20190308
